FAERS Safety Report 6047819-1 (Version None)
Quarter: 2009Q1

REPORT INFORMATION
  Report Type: 
  Country: None (occurrence: None)
  Receive Date: 20090123
  Receipt Date: 20090113
  Transmission Date: 20090719
  Serious: Yes (Death, Other)
  Sender: FDA-Public Use
  Company Number: JP-PFIZER INC-2009155675

PATIENT

DRUGS (3)
  1. NORVASC [Suspect]
     Dosage: UNK
     Route: 048
     Dates: start: 20081212, end: 20081215
  2. DEPAKENE [Suspect]
     Dosage: UNK
  3. DAONIL [Suspect]
     Dosage: UNK
     Route: 048

REACTIONS (3)
  - HEPATIC FUNCTION ABNORMAL [None]
  - JAUNDICE [None]
  - PYREXIA [None]
